FAERS Safety Report 14287319 (Version 3)
Quarter: 2018Q1

REPORT INFORMATION
  Report Type: Report from Study
  Country: JP (occurrence: JP)
  Receive Date: 20171214
  Receipt Date: 20180322
  Transmission Date: 20180509
  Serious: Yes (Hospitalization, Other)
  Sender: FDA-Public Use
  Company Number: JP-BRISTOL-MYERS SQUIBB COMPANY-BMS-2017-083331

PATIENT
  Age: 73 Year
  Sex: Female

DRUGS (8)
  1. CEFTRIAXONE SODIUM. [Suspect]
     Active Substance: CEFTRIAXONE SODIUM
     Indication: PYREXIA
     Dosage: UNK
     Route: 065
     Dates: start: 20160514
  2. VASOLAN                            /00014302/ [Suspect]
     Active Substance: VERAPAMIL HYDROCHLORIDE
     Indication: SUPRAVENTRICULAR TACHYCARDIA
     Route: 065
  3. GEMCITABINE [Suspect]
     Active Substance: GEMCITABINE\GEMCITABINE HYDROCHLORIDE
     Indication: PRODUCT USED FOR UNKNOWN INDICATION
     Dosage: UNK
     Route: 065
     Dates: start: 20170227, end: 20170405
  4. CARBOPLATIN. [Suspect]
     Active Substance: CARBOPLATIN
     Indication: PRODUCT USED FOR UNKNOWN INDICATION
     Dosage: UNK
     Route: 065
     Dates: start: 20160705, end: 20160928
  5. NIVOLUMAB [Suspect]
     Active Substance: NIVOLUMAB
     Indication: NON-SMALL CELL LUNG CANCER
     Dosage: 3 MG/KG, UNK
     Route: 041
     Dates: start: 20160318, end: 20160506
  6. THYRADIN [Concomitant]
     Active Substance: LEVOTHYROXINE
     Indication: PRODUCT USED FOR UNKNOWN INDICATION
     Route: 065
  7. ZOSYN [Suspect]
     Active Substance: PIPERACILLIN SODIUM\TAZOBACTAM SODIUM
     Indication: PYREXIA
     Dosage: UNK
     Route: 065
     Dates: start: 20160514
  8. PACLITAXEL ALBUMIN [Suspect]
     Active Substance: PACLITAXEL
     Indication: PRODUCT USED FOR UNKNOWN INDICATION
     Dosage: UNK
     Route: 065
     Dates: start: 20160705, end: 20160928

REACTIONS (12)
  - Alanine aminotransferase increased [Recovered/Resolved]
  - Diarrhoea [Recovering/Resolving]
  - Hypothyroidism [Recovering/Resolving]
  - Nausea [Recovering/Resolving]
  - Hyponatraemia [Recovered/Resolved]
  - Supraventricular tachycardia [Recovering/Resolving]
  - Aspartate aminotransferase increased [Recovered/Resolved]
  - Pyrexia [Recovered/Resolved]
  - Dehydration [Unknown]
  - Blood creatinine increased [Recovered/Resolved]
  - Neutrophil count decreased [Recovered/Resolved]
  - Platelet count decreased [Recovered/Resolved]

NARRATIVE: CASE EVENT DATE: 2016
